FAERS Safety Report 23397936 (Version 1)
Quarter: 2024Q1

REPORT INFORMATION
  Report Type: Spontaneous
  Country: US (occurrence: None)
  Receive Date: 20240111
  Receipt Date: 20240111
  Transmission Date: 20240410
  Serious: Yes (Life-Threatening)
  Sender: FDA-Public Use
  Company Number: None

PATIENT
  Sex: 0

DRUGS (3)
  1. CEFAZOLIN [Suspect]
     Active Substance: CEFAZOLIN
     Indication: Antibiotic prophylaxis
     Dosage: FREQUENCY : ONCE;?
     Route: 042
     Dates: start: 20231226, end: 20231226
  2. SODIUM CHLORIDE [Concomitant]
     Active Substance: SODIUM CHLORIDE
     Dates: start: 20231228, end: 20231228
  3. PROPOFOL [Concomitant]
     Active Substance: PROPOFOL
     Dates: start: 20231228, end: 20231228

REACTIONS (2)
  - Anaphylactic reaction [None]
  - Anaphylactoid reaction [None]

NARRATIVE: CASE EVENT DATE: 20231228
